FAERS Safety Report 20050406 (Version 2)
Quarter: 2021Q4

REPORT INFORMATION
  Report Type: Spontaneous
  Country: ZA (occurrence: ZA)
  Receive Date: 20211109
  Receipt Date: 20211216
  Transmission Date: 20220304
  Serious: Yes (Hospitalization, Other)
  Sender: FDA-Public Use
  Company Number: ZA-ALLERGAN-2137310US

PATIENT

DRUGS (1)
  1. OZURDEX [Suspect]
     Active Substance: DEXAMETHASONE
     Indication: Product used for unknown indication
     Dosage: 0.7 MG, SINGLE
     Route: 031
     Dates: start: 20211013, end: 20211013

REACTIONS (5)
  - Corneal oedema [Unknown]
  - Eye irritation [Unknown]
  - Macular oedema [Unknown]
  - Eye inflammation [Unknown]
  - Device dislocation [Unknown]

NARRATIVE: CASE EVENT DATE: 20211021
